FAERS Safety Report 4734450-0 (Version None)
Quarter: 2005Q3

REPORT INFORMATION
  Report Type: 
  Country: None (occurrence: None)
  Receive Date: 20050804
  Receipt Date: 20050727
  Transmission Date: 20060218
  Serious: Yes (Other)
  Sender: FDA-Public Use
  Company Number: JP-ROCHE-412099

PATIENT
  Age: 87 Year
  Sex: Male

DRUGS (11)
  1. ROCEPHIN [Suspect]
     Indication: PNEUMONIA
     Route: 041
     Dates: start: 20050721, end: 20050721
  2. FUROSEMIDE [Concomitant]
  3. WARFARIN [Concomitant]
     Route: 048
  4. ALLOZYM [Concomitant]
     Route: 048
  5. DIGOSIN [Concomitant]
  6. PROMAC [Concomitant]
     Route: 048
  7. ARTIST [Concomitant]
     Route: 048
  8. VERAPAMIL [Concomitant]
  9. MAGNESIUM OXIDE [Concomitant]
     Dosage: ORAL FORMULATION.
     Route: 048
  10. FLUITRAN [Concomitant]
     Route: 048
  11. SUNRIS [Concomitant]
     Route: 048

REACTIONS (1)
  - SHOCK [None]
